FAERS Safety Report 11467787 (Version 1)
Quarter: 2015Q3

REPORT INFORMATION
  Report Type: Spontaneous
  Country: US (occurrence: None)
  Receive Date: 20150904
  Receipt Date: 20150904
  Transmission Date: 20151125
  Serious: No
  Sender: FDA-Public Use
  Company Number: None

PATIENT
  Age: 53 Year
  Sex: Male

DRUGS (1)
  1. BACTRIM [Suspect]
     Active Substance: SULFAMETHOXAZOLE\TRIMETHOPRIM
     Indication: LOCALISED INFECTION
     Dates: start: 20131029, end: 20131122

REACTIONS (6)
  - Drug-induced liver injury [None]
  - Chills [None]
  - Influenza like illness [None]
  - Jaundice [None]
  - Drug ineffective [None]
  - Pyrexia [None]

NARRATIVE: CASE EVENT DATE: 20131203
